FAERS Safety Report 8450960-7 (Version None)
Quarter: 2012Q2

REPORT INFORMATION
  Report Type: 
  Country: None (occurrence: None)
  Receive Date: 20120620
  Receipt Date: 20120607
  Transmission Date: 20120825
  Serious: Yes (Hospitalization)
  Sender: FDA-Public Use
  Company Number: JP-ROCHE-1050895

PATIENT
  Sex: Female
  Weight: 52 kg

DRUGS (9)
  1. RABEPRAZOLE SODIUM [Concomitant]
     Indication: PROPHYLAXIS
     Route: 048
  2. FOLIAMIN [Concomitant]
     Indication: PROPHYLAXIS
     Route: 048
  3. RALOXIFENE HCL [Concomitant]
     Indication: OSTEOPOROSIS
     Route: 048
  4. SELBEX [Concomitant]
     Indication: GASTRITIS
     Route: 048
  5. LIPITOR [Concomitant]
     Indication: HYPERLIPIDAEMIA
     Route: 048
  6. ACTEMRA [Suspect]
     Indication: RHEUMATOID ARTHRITIS
     Route: 041
     Dates: start: 20110101, end: 20120217
  7. LOXONIN [Concomitant]
     Indication: RHEUMATOID ARTHRITIS
     Route: 048
  8. VITAMIN B12 [Concomitant]
     Indication: NEUROPATHY PERIPHERAL
     Route: 048
  9. RHEUMATREX [Concomitant]
     Indication: RHEUMATOID ARTHRITIS
     Route: 048

REACTIONS (1)
  - SUBARACHNOID HAEMORRHAGE [None]
